FAERS Safety Report 6396735-4 (Version None)
Quarter: 2009Q4

REPORT INFORMATION
  Report Type: 
  Country: None (occurrence: None)
  Receive Date: 20091012
  Receipt Date: 20090714
  Transmission Date: 20100525
  Serious: No
  Sender: FDA-Public Use
  Company Number: US-ASTRAZENECA-2008UW27248

PATIENT
  Age: 60 Year
  Sex: Female
  Weight: 69.9 kg

DRUGS (13)
  1. SYMBICORT [Suspect]
     Indication: ASTHMA
     Dosage: 160/4.5 MICROGRAMS 2 PUFFS TWO TIMES A DAY
     Route: 055
     Dates: start: 20080901
  2. NEXIUM [Concomitant]
     Route: 048
  3. FLONASE [Concomitant]
  4. VERAMIST [Concomitant]
  5. CLARITIN [Concomitant]
  6. SINGULAIR [Concomitant]
  7. GLIPIZIDE [Concomitant]
  8. GLUCOTROL [Concomitant]
  9. EXFORGE [Concomitant]
  10. JANUVIA [Concomitant]
  11. PRAVACHOL [Concomitant]
  12. MAGNESIUM [Concomitant]
  13. VITAMIN B-12 [Concomitant]

REACTIONS (3)
  - DYSPHONIA [None]
  - LARYNGITIS [None]
  - ORAL FUNGAL INFECTION [None]
